FAERS Safety Report 8511911-X (Version None)
Quarter: 2012Q3

REPORT INFORMATION
  Report Type: 
  Country: None (occurrence: None)
  Receive Date: 20120716
  Receipt Date: 20120706
  Transmission Date: 20120928
  Serious: Yes (Hospitalization, Other)
  Sender: FDA-Public Use
  Company Number: FR-ASTRAZENECA-2012SE42248

PATIENT
  Age: 59 Year
  Sex: Male
  Weight: 80 kg

DRUGS (5)
  1. LAMICTAL [Suspect]
     Route: 048
  2. QUETIAPINE FUMARATE [Suspect]
     Route: 048
     Dates: start: 20120312
  3. LAMICTAL [Suspect]
     Route: 048
     Dates: start: 20100101
  4. PROTHIADEN [Suspect]
     Route: 048
     Dates: start: 20120323
  5. QUETIAPINE FUMARATE [Suspect]
     Indication: BIPOLAR DISORDER
     Route: 048

REACTIONS (5)
  - DISINHIBITION [None]
  - AGGRESSION [None]
  - DELIRIUM [None]
  - NERVOUSNESS [None]
  - AGITATION [None]
